FAERS Safety Report 25039216 (Version 1)
Quarter: 2025Q1

REPORT INFORMATION
  Report Type: Spontaneous
  Country: US (occurrence: US)
  Receive Date: 20250305
  Receipt Date: 20250305
  Transmission Date: 20250409
  Serious: No
  Sender: APOTEX
  Company Number: US-APOTEX-2025AP002294

PATIENT
  Sex: Female

DRUGS (1)
  1. VILAZODONE HYDROCHLORIDE [Suspect]
     Active Substance: VILAZODONE HYDROCHLORIDE
     Indication: Mental disorder
     Route: 065

REACTIONS (3)
  - Adverse drug reaction [Unknown]
  - Product formulation issue [Unknown]
  - Drug effect less than expected [Unknown]
